FAERS Safety Report 9538903 (Version 1)
Quarter: 2013Q3

REPORT INFORMATION
  Report Type: Spontaneous
  Country: FR (occurrence: FR)
  Receive Date: 20130920
  Receipt Date: 20130920
  Transmission Date: 20140515
  Serious: Yes (Hospitalization)
  Sender: FDA-Public Use
  Company Number: FR-PFIZER INC-2013263208

PATIENT
  Age: 50 Year
  Sex: Male

DRUGS (5)
  1. FLUOROURACILE [Suspect]
     Dosage: 1ST COURSE
     Route: 042
     Dates: start: 20130703
  2. CALCIUM FOLINATE [Suspect]
     Dosage: 1ST COURSE
     Route: 042
     Dates: start: 20130703
  3. IRINOTECAN [Suspect]
     Indication: ADENOCARCINOMA PANCREAS
     Dosage: 1ST COURSE
     Route: 042
     Dates: start: 20130703
  4. OXALIPLATIN [Suspect]
     Dosage: 1ST COURSE
     Route: 042
     Dates: start: 20130703
  5. ATROPINE [Concomitant]

REACTIONS (1)
  - Cholinergic syndrome [Recovered/Resolved]
